FAERS Safety Report 12042510 (Version 1)
Quarter: 2016Q1

REPORT INFORMATION
  Report Type: Spontaneous
  Country: BR (occurrence: BR)
  Receive Date: 20160208
  Receipt Date: 20160208
  Transmission Date: 20160526
  Serious: Yes (Other)
  Sender: FDA-Public Use
  Company Number: BR-PFIZER INC-2016069240

PATIENT
  Age: 74 Year
  Sex: Female

DRUGS (4)
  1. EFFEXOR XR [Suspect]
     Active Substance: VENLAFAXINE HYDROCHLORIDE
     Indication: DEPRESSION
     Dosage: 150 MG (1 TABLET) AT NIGHT
  2. DIOVAN [Concomitant]
     Active Substance: VALSARTAN
     Indication: PERIPHERAL VASCULAR DISORDER
     Dosage: 1 TABLET, AT NIGHT
  3. EFFEXOR XR [Suspect]
     Active Substance: VENLAFAXINE HYDROCHLORIDE
     Indication: PANIC DISORDER
  4. ASTROGLICO [Concomitant]
     Indication: OSTEOARTHRITIS
     Dosage: 1 SACHET AT NIGHT

REACTIONS (1)
  - Foot fracture [Unknown]

NARRATIVE: CASE EVENT DATE: 201601
